FAERS Safety Report 22780450 (Version 2)
Quarter: 2024Q1

REPORT INFORMATION
  Report Type: Spontaneous
  Country: CA (occurrence: CA)
  Receive Date: 20230803
  Receipt Date: 20240326
  Transmission Date: 20240410
  Serious: Yes (Other)
  Sender: FDA-Public Use
  Company Number: None

PATIENT
  Age: 19 Year
  Sex: Female

DRUGS (2)
  1. ESCITALOPRAM [Suspect]
     Active Substance: ESCITALOPRAM OXALATE
     Indication: Product used for unknown indication
     Dosage: ESCITALOPRAM PRESCRIBED SINCE NOV 15, DAILY ON DEC 31.
     Route: 065
  2. QUETIAPINE [Suspect]
     Active Substance: QUETIAPINE
     Indication: Product used for unknown indication
     Dosage: QUETIAPINE NEWLY PRESCRIBED DEC 31
     Route: 065

REACTIONS (5)
  - Altered state of consciousness [Unknown]
  - Tremor [Unknown]
  - Serotonin syndrome [Unknown]
  - Vision blurred [Unknown]
  - Nystagmus [Unknown]

NARRATIVE: CASE EVENT DATE: 20230109
